FAERS Safety Report 6013130-8 (Version None)
Quarter: 2008Q4

REPORT INFORMATION
  Report Type: 
  Country: None (occurrence: None)
  Receive Date: 20081219
  Receipt Date: 20081212
  Transmission Date: 20090506
  Serious: Yes (Hospitalization)
  Sender: FDA-Public Use
  Company Number: US-BIOGENIDEC-2008BI027000

PATIENT
  Age: 45 Year
  Sex: Female
  Weight: 57 kg

DRUGS (8)
  1. TYSABRI [Suspect]
     Indication: MULTIPLE SCLEROSIS
     Route: 042
     Dates: start: 20071017, end: 20080714
  2. FLAXSEED OIL [Concomitant]
     Indication: SUPPLEMENTATION THERAPY
  3. LEXAPRO [Concomitant]
  4. M.V.I. [Concomitant]
     Indication: SUPPLEMENTATION THERAPY
  5. DETROL LA [Concomitant]
     Indication: BLADDER SPASM
  6. PROTONIX [Concomitant]
     Indication: GASTROOESOPHAGEAL REFLUX DISEASE
  7. AMBIEN CR [Concomitant]
     Indication: INSOMNIA
  8. METHYLPREDNISOLONE [Concomitant]
     Indication: MULTIPLE SCLEROSIS
     Route: 042
     Dates: start: 20081003

REACTIONS (1)
  - SYNCOPE [None]
